FAERS Safety Report 16310459 (Version 1)
Quarter: 2019Q2

REPORT INFORMATION
  Report Type: Report from Study
  Country: US (occurrence: US)
  Receive Date: 20190514
  Receipt Date: 20190514
  Transmission Date: 20190711
  Serious: Yes (Hospitalization)
  Sender: FDA-Public Use
  Company Number: US-GILEAD-2019-0407250

PATIENT
  Age: 10 Year
  Sex: Male

DRUGS (15)
  1. AMOXICILLIN AND CLAVULANATE POTASSIUM [Concomitant]
     Active Substance: AMOXICILLIN\CLAVULANATE POTASSIUM
  2. ALBUTEROL [SALBUTAMOL] [Concomitant]
     Active Substance: ALBUTEROL
  3. DIAZEPAM. [Concomitant]
     Active Substance: DIAZEPAM
  4. LORATADINE. [Concomitant]
     Active Substance: LORATADINE
  5. BACLOFEN. [Concomitant]
     Active Substance: BACLOFEN
  6. LEVETIRACETAM. [Concomitant]
     Active Substance: LEVETIRACETAM
  7. VITAMIN D3 [Concomitant]
     Active Substance: CHOLECALCIFEROL
  8. LANSOPRAZOLE. [Concomitant]
     Active Substance: LANSOPRAZOLE
  9. TRILEPTAL [Concomitant]
     Active Substance: OXCARBAZEPINE
  10. OXCARBAZEPIN [Concomitant]
     Active Substance: OXCARBAZEPINE
  11. PERFOROMIST [Concomitant]
     Active Substance: FORMOTEROL FUMARATE DIHYDRATE
  12. AZTREONAM LYSINE [Suspect]
     Active Substance: AZTREONAM LYSINE
     Indication: CYSTIC FIBROSIS
     Dosage: 75 MG (28 DAYS ON, 28 DAYS OFF)
     Route: 055
     Dates: start: 20170520
  13. BUDESONIDE. [Concomitant]
     Active Substance: BUDESONIDE
  14. TRANSDERM [GLYCERYL TRINITRATE] [Concomitant]
  15. VALPROIC ACID. [Concomitant]
     Active Substance: VALPROIC ACID

REACTIONS (1)
  - Lung disorder [Not Recovered/Not Resolved]

NARRATIVE: CASE EVENT DATE: 20190501
